FAERS Safety Report 9766091 (Version 3)
Quarter: 2014Q2

REPORT INFORMATION
  Report Type: Spontaneous
  Country: IT (occurrence: IT)
  Receive Date: 20131217
  Receipt Date: 20140409
  Transmission Date: 20141212
  Serious: Yes (Other)
  Sender: FDA-Public Use
  Company Number: IT-AMGEN-ITASP2013088563

PATIENT
  Age: 82 Year
  Sex: Male

DRUGS (5)
  1. ENBREL [Suspect]
     Indication: PSORIASIS
     Dosage: 50 MG, WEEKLY
     Route: 058
     Dates: start: 20040101
  2. ENBREL [Suspect]
     Indication: PSORIATIC ARTHROPATHY
  3. METHOTREXATE SODIUM [Suspect]
     Indication: PSORIASIS
     Dosage: VARIABLE DOSAGE BETWEEN 5 AND 7.5 MG / WEEK
     Route: 058
     Dates: start: 20080101, end: 20130501
  4. METHOTREXATE SODIUM [Suspect]
     Indication: PSORIATIC ARTHROPATHY
  5. METHOTREXATE SODIUM [Suspect]
     Indication: PSORIATIC ARTHROPATHY

REACTIONS (1)
  - Intestinal polyp [Recovered/Resolved]
